FAERS Safety Report 8835206 (Version 2)
Quarter: 2012Q4

REPORT INFORMATION
  Report Type: 
  Country: None (occurrence: US)
  Receive Date: 20121011
  Receipt Date: 20121120
  Transmission Date: 20130627
  Serious: Yes (Other)
  Sender: FDA-Public Use
  Company Number: US-TEVA-363379USA

PATIENT
  Sex: Female

DRUGS (10)
  1. COPAXONE [Suspect]
     Indication: MULTIPLE SCLEROSIS
     Dosage: 20 Milligram Daily; 2 1/-3 years ago
  2. NEXIUM [Concomitant]
     Dosage: 40 Milligram Daily;
  3. BACLOFEN [Concomitant]
     Indication: MUSCLE SPASTICITY
     Dosage: 30 Milligram Daily;
  4. CYMBALTA [Concomitant]
     Dosage: 120 Milligram Daily;
  5. TOPROL XL [Concomitant]
     Indication: HYPERTENSION
     Dosage: at bedtime
  6. ZOLPIDEM [Concomitant]
     Dosage: HS
  7. VIVELLE-DOT [Concomitant]
     Dosage: 0.1 mg/24 hours
  8. VALIUM [Concomitant]
     Indication: ANXIETY
     Dosage: 10 Milligram Daily;
  9. EVOXAC [Concomitant]
     Dosage: PRN
  10. CALCIUM [Concomitant]

REACTIONS (12)
  - Immediate post-injection reaction [Recovered/Resolved]
  - Paralysis [Recovered/Resolved]
  - Flushing [Recovered/Resolved]
  - Pyrexia [Unknown]
  - Chills [Recovered/Resolved]
  - Injection site erythema [Unknown]
  - Injection site pruritus [Unknown]
  - Injection site bruising [Unknown]
  - Muscle disorder [Recovered/Resolved]
  - Muscle rigidity [Recovered/Resolved]
  - Pain [Unknown]
  - Incorrect route of drug administration [Unknown]
